FAERS Safety Report 7332093-6 (Version None)
Quarter: 2011Q1

REPORT INFORMATION
  Report Type: 
  Country: None (occurrence: None)
  Receive Date: 20110304
  Receipt Date: 20110221
  Transmission Date: 20110831
  Serious: Yes (Death)
  Sender: FDA-Public Use
  Company Number: JP-SANOFI-AVENTIS-2011SA011072

PATIENT
  Age: 67 Year
  Sex: Female
  Weight: 40 kg

DRUGS (18)
  1. KYTRIL [Concomitant]
     Indication: PROPHYLAXIS OF NAUSEA AND VOMITING
     Route: 041
     Dates: start: 20101124, end: 20110105
  2. AVASTIN [Suspect]
     Indication: COLON CANCER
     Route: 041
     Dates: start: 20101124, end: 20101124
  3. KYTRIL [Concomitant]
     Route: 048
     Dates: start: 20101124, end: 20101219
  4. LOXONIN [Concomitant]
     Indication: ANALGESIC THERAPY
     Route: 048
     Dates: end: 20110118
  5. TS-1 [Suspect]
     Route: 048
     Dates: start: 20110105, end: 20110118
  6. AVASTIN [Suspect]
     Route: 041
     Dates: start: 20110105, end: 20110105
  7. KYTRIL [Concomitant]
     Route: 048
     Dates: start: 20101124, end: 20101219
  8. MUCOSTA [Concomitant]
     Indication: PROPHYLAXIS
     Route: 048
     Dates: end: 20110118
  9. MAGNESIUM OXIDE [Concomitant]
     Indication: CONSTIPATION PROPHYLAXIS
     Route: 048
     Dates: end: 20110118
  10. DEXAMETHASONE [Concomitant]
     Indication: FATIGUE
     Route: 048
     Dates: start: 20101201, end: 20110111
  11. KYTRIL [Concomitant]
     Indication: PREMEDICATION
     Route: 041
     Dates: start: 20101124, end: 20110105
  12. MYSLEE [Concomitant]
     Indication: INSOMNIA
     Route: 048
     Dates: end: 20110118
  13. FERROUS CITRATE [Concomitant]
     Route: 048
     Dates: start: 20101215, end: 20110106
  14. ELPLAT [Suspect]
     Route: 041
     Dates: start: 20110105, end: 20110105
  15. DEXAMETHASONE SODIUM PHOSPHATE [Concomitant]
     Indication: PREMEDICATION
     Route: 041
     Dates: start: 20101124, end: 20110105
  16. GASTER D [Concomitant]
     Indication: PROPHYLAXIS
     Route: 048
     Dates: start: 20101201, end: 20110111
  17. ELPLAT [Suspect]
     Indication: COLON CANCER
     Route: 041
     Dates: start: 20101124, end: 20101124
  18. TS-1 [Suspect]
     Indication: COLON CANCER
     Route: 048
     Dates: start: 20101124, end: 20101228

REACTIONS (1)
  - SUDDEN DEATH [None]
